FAERS Safety Report 4565105-3 (Version None)
Quarter: 2005Q1

REPORT INFORMATION
  Report Type: 
  Country: None (occurrence: None)
  Receive Date: 20050126
  Receipt Date: 20050113
  Transmission Date: 20050727
  Serious: Yes (Hospitalization)
  Sender: FDA-Public Use
  Company Number: D01200301043

PATIENT
  Age: 62 Year
  Sex: Male

DRUGS (19)
  1. OXALIPLATIN [Suspect]
     Indication: CHEMOTHERAPY NEUROTOXICITY ATTENUATION
     Dosage: 1 MG QD ORAL
     Route: 048
     Dates: start: 20030217, end: 20030706
  2. OXALIPLATIN [Suspect]
     Indication: COLORECTAL CANCER METASTATIC
     Dosage: 1 MG QD ORAL
     Route: 048
     Dates: start: 20030217, end: 20030706
  3. FLUOROURACIL [Suspect]
     Dosage: 85 MG/M2 Q2W / 85 MG/M2 Q2W INTRAVENOUS NOS
     Route: 042
     Dates: start: 20030616, end: 20030616
  4. (SR57746 OR PLACEBO [Suspect]
     Dosage: 400 MG/M2 AS IV BOLUS THEN 600 MG/M2 AS 22 HOURS CONTINUOUS INFUSION D1-D2 Q2W INTRAVENOUS NOS
     Route: 042
     Dates: start: 20030616, end: 20030617
  5. LEUCOVORIN CALCIUM [Suspect]
     Dosage: 200 MG/M2 AS 2 HOURS INFUSION ON D1-D2 Q2W INTRAVENOUS NOS
     Route: 042
     Dates: start: 20030616, end: 20030617
  6. MERBENTYL (DICYCLOVERINE HCL) [Concomitant]
  7. MAXALON (METOCLOPRAMIDE HCL) [Concomitant]
  8. OMEPRAZOLE [Concomitant]
  9. CODANTHRUSATE [Concomitant]
  10. DICLOFENAC [Concomitant]
  11. MORPHINE SULFATE [Concomitant]
  12. SEVREDOL (MORPHINE SULFATE) [Concomitant]
  13. OXYGEN (HOME) (OXYGEN) [Concomitant]
  14. DICLOFENAC SODIUM [Concomitant]
  15. GRANISETRON [Concomitant]
  16. DEXAMETHASONE [Concomitant]
  17. DOMPERIDONE [Concomitant]
  18. KYTRIL [Concomitant]
  19. PIRITON                (CHLORPHENAMINE MALEATE) [Concomitant]

REACTIONS (3)
  - CHEST PAIN [None]
  - MYOCARDIAL ISCHAEMIA [None]
  - RASH [None]
